FAERS Safety Report 6396228-4 (Version None)
Quarter: 2009Q4

REPORT INFORMATION
  Report Type: 
  Country: None (occurrence: None)
  Receive Date: 20091012
  Receipt Date: 20070611
  Transmission Date: 20100525
  Serious: Yes (Hospitalization, Other)
  Sender: FDA-Public Use
  Company Number: US-ASTRAZENECA-2006UW26342

PATIENT
  Age: 25 Year
  Sex: Female
  Weight: 59.4 kg

DRUGS (4)
  1. SEROQUEL [Suspect]
     Route: 048
     Dates: end: 20050101
  2. ZYPREXA [Concomitant]
     Dates: start: 20040101
  3. NEURONTIN [Concomitant]
     Dosage: THRICE DAILY
     Dates: start: 20040307
  4. SKELAXIN [Concomitant]
     Indication: NECK PAIN
     Dosage: 400 MG, 1 - 2 TABLETS THREE TIMES A DAY
     Dates: start: 20040307

REACTIONS (11)
  - DIABETES MELLITUS [None]
  - DIABETES MELLITUS INADEQUATE CONTROL [None]
  - DIABETIC COMA [None]
  - DIABETIC KETOACIDOSIS [None]
  - HYPERGLYCAEMIA [None]
  - KETOACIDOSIS [None]
  - LIVER DISORDER [None]
  - NEUROLEPTIC MALIGNANT SYNDROME [None]
  - NEUROPATHY PERIPHERAL [None]
  - PANCREATITIS [None]
  - TYPE 1 DIABETES MELLITUS [None]
